FAERS Safety Report 10287252 (Version 5)
Quarter: 2014Q4

REPORT INFORMATION
  Report Type: Spontaneous
  Country: US (occurrence: US)
  Receive Date: 20140709
  Receipt Date: 20141128
  Transmission Date: 20150528
  Serious: No
  Sender: FDA-Public Use
  Company Number: US-PFIZER INC-2014185828

PATIENT
  Age: 70 Year
  Sex: Female

DRUGS (3)
  1. METHOTREXATE [Concomitant]
     Active Substance: METHOTREXATE
     Dosage: UNK
  2. SUTENT [Suspect]
     Active Substance: SUNITINIB MALATE
     Indication: RHEUMATOID ARTHRITIS
  3. SUTENT [Suspect]
     Active Substance: SUNITINIB MALATE
     Indication: MALIGNANT NEOPLASM OF RENAL PELVIS
     Dosage: 25 MG, CYCLIC 1X/DAY (4 WEEKS ON 2 WEEKS OFF)
     Route: 048
     Dates: start: 20140530

REACTIONS (7)
  - Product use issue [Unknown]
  - Pain in extremity [Unknown]
  - Skin fissures [Unknown]
  - Acne [Unknown]
  - Stomatitis [Unknown]
  - Diarrhoea [Unknown]
  - Stomatitis [Unknown]

NARRATIVE: CASE EVENT DATE: 20140701
